FAERS Safety Report 7998250-0 (Version None)
Quarter: 2011Q4

REPORT INFORMATION
  Report Type: 
  Country: None (occurrence: None)
  Receive Date: 20111221
  Receipt Date: 20110513
  Transmission Date: 20120403
  Serious: No
  Sender: FDA-Public Use
  Company Number: US-GLAXOSMITHKLINE-A0927806A

PATIENT
  Age: 72 Year
  Sex: Male

DRUGS (1)
  1. LOVAZA [Suspect]
     Dosage: 1G UNKNOWN
     Route: 065
     Dates: start: 20100501

REACTIONS (1)
  - SKIN DISCOLOURATION [None]
